FAERS Safety Report 15367745 (Version 1)
Quarter: 2018Q3

REPORT INFORMATION
  Report Type: Spontaneous
  Country: DK (occurrence: DK)
  Receive Date: 20180910
  Receipt Date: 20180910
  Transmission Date: 20181010
  Serious: Yes (Hospitalization)
  Sender: FDA-Public Use
  Company Number: PHHY2018DK092416

PATIENT
  Age: 70 Year
  Sex: Female

DRUGS (10)
  1. ACETYLSALICYLIC ACID [Concomitant]
     Active Substance: ASPIRIN
     Indication: ANTICOAGULANT THERAPY
     Dosage: STYRKE: 75 MG.
     Route: 048
     Dates: start: 20140430
  2. CITALOPRAM [Suspect]
     Active Substance: CITALOPRAM HYDROBROMIDE
     Indication: DEPRESSION
     Dosage: 40 MG, (STYRKE: 40 MG.)
     Route: 048
     Dates: start: 20160527
  3. OLANZAPINE. [Suspect]
     Active Substance: OLANZAPINE
     Indication: BIPOLAR DISORDER
     Dosage: 10 MG, QD (STRIKE:5 MG))
     Route: 048
     Dates: start: 20151116
  4. PARACETAMOL [Concomitant]
     Active Substance: ACETAMINOPHEN
     Indication: PAIN
     Dosage: 1000 MG, (STYRKE: 500 MG. DOSIS: 2 TABLETTER P.N., H?JST 3 GANGE DAGLIGT.)
     Route: 048
     Dates: start: 20180410
  5. DIPYRIDAMOLE. [Concomitant]
     Active Substance: DIPYRIDAMOLE
     Indication: THROMBOSIS PROPHYLAXIS
     Dosage: 400 MG, (STYRKE: 200 MG.)
     Route: 048
     Dates: start: 20130407
  6. SALBUTAMOL [Concomitant]
     Active Substance: ALBUTEROL
     Indication: ASTHMA
     Dosage: 200 UG, (STYRKE: 200 MIKROGRAM/DOSIS. DOSIS: 1 SUG P.N., H?JST 4 GANGE DAGLIGT.)
     Route: 055
     Dates: start: 20150303
  7. SODIUM VALPROATE [Concomitant]
     Active Substance: VALPROATE SODIUM
     Indication: AFFECTIVE DISORDER
     Dosage: 2000 MG, QD (STYRKE: 500 MG)
     Route: 048
     Dates: start: 20140924
  8. RISPOLEPT CONSTA [Suspect]
     Active Substance: RISPERIDONE
     Indication: BIPOLAR DISORDER
     Dosage: 37.5 MG, (STYRKE: 37,5 MG.)
     Route: 030
     Dates: start: 20160530
  9. CETIRIZINE [Concomitant]
     Active Substance: CETIRIZINE HYDROCHLORIDE
     Indication: URTICARIA
     Dosage: 10 MG, QD (STYRKE: 10 MG)
     Route: 048
     Dates: start: 20140430
  10. LYSANTIN [Suspect]
     Active Substance: ORPHENADRINE HYDROCHLORIDE
     Indication: ADVERSE DRUG REACTION
     Dosage: 100 MG, (STYRKE: 50 MG)
     Route: 048
     Dates: start: 20140430

REACTIONS (2)
  - Fall [Recovered/Resolved with Sequelae]
  - Limb injury [Not Recovered/Not Resolved]

NARRATIVE: CASE EVENT DATE: 20180606
